FAERS Safety Report 4927504-7 (Version None)
Quarter: 2006Q1

REPORT INFORMATION
  Report Type: 
  Country: None (occurrence: None)
  Receive Date: 20060228
  Receipt Date: 20050414
  Transmission Date: 20060701
  Serious: Yes (Hospitalization, Other)
  Sender: FDA-Public Use
  Company Number: US-MERCK-0504USA02800

PATIENT
  Age: 37 Year
  Sex: Female
  Weight: 141 kg

DRUGS (3)
  1. VIOXX [Suspect]
     Route: 048
     Dates: start: 19991101, end: 20030101
  2. PROVENTIL [Concomitant]
     Route: 065
  3. FLOVENT [Concomitant]
     Route: 065

REACTIONS (2)
  - CARDIAC FAILURE CONGESTIVE [None]
  - GASTRIC DISORDER [None]
